FAERS Safety Report 15222395 (Version 3)
Quarter: 2018Q4

REPORT INFORMATION
  Report Type: Spontaneous
  Country: DE (occurrence: DE)
  Receive Date: 20180731
  Receipt Date: 20181002
  Transmission Date: 20190204
  Serious: Yes (Death, Life-Threatening, Hospitalization, Other)
  Sender: FDA-Public Use
  Company Number: DE-PFIZER INC-2018302696

PATIENT
  Age: 30 Year
  Sex: Female

DRUGS (2)
  1. SAYANA [Suspect]
     Active Substance: MEDROXYPROGESTERONE
     Indication: CONTRACEPTION
     Dosage: 1 DF, UNK (104 MG/65 ML), DURATION OF DRUG ADMINISTRATION REPORTED AS 3 MONTH
     Route: 058
     Dates: start: 20180619, end: 20180619
  2. RAMIPRIL. [Concomitant]
     Active Substance: RAMIPRIL
     Indication: HYPERTENSION
     Route: 048

REACTIONS (4)
  - Cardio-respiratory arrest [Fatal]
  - Anaphylactic shock [Fatal]
  - Multiple organ dysfunction syndrome [Fatal]
  - Circulatory collapse [Fatal]

NARRATIVE: CASE EVENT DATE: 201806
